FAERS Safety Report 11130709 (Version 1)
Quarter: 2015Q2

REPORT INFORMATION
  Report Type: Spontaneous
  Country: US (occurrence: None)
  Receive Date: 20150507
  Receipt Date: 20150507
  Transmission Date: 20150821
  Serious: Yes (Other)
  Sender: FDA-Public Use
  Company Number: 2014AP006452

PATIENT
  Age: 21 Year
  Sex: Male
  Weight: 90.7 kg

DRUGS (5)
  1. HYDROCORTISONE. [Concomitant]
     Active Substance: HYDROCORTISONE
  2. TESTOSTERONE. [Concomitant]
     Active Substance: TESTOSTERONE
  3. LEVOTHYROXINE SODIUM. [Concomitant]
     Active Substance: LEVOTHYROXINE SODIUM
  4. SALBUTAMOL [Concomitant]
     Active Substance: ALBUTEROL
  5. CABERGOLINE (CABERGOLINE) TABLET [Suspect]
     Active Substance: CABERGOLINE
     Indication: PROLACTINOMA
     Dosage: 4.5 MG/WEEK, ADMINISTERED IN 3 EQUALLY DIVIDED WEEKLY DOSES

REACTIONS (1)
  - Cardiac valve disease [None]
